FAERS Safety Report 11629281 (Version 2)
Quarter: 2015Q4

REPORT INFORMATION
  Report Type: Report from Study
  Country: US (occurrence: US)
  Receive Date: 20151014
  Receipt Date: 20151223
  Transmission Date: 20160304
  Serious: Yes (Hospitalization)
  Sender: FDA-Public Use
  Company Number: US-ACTELION-A-US2015-125397

PATIENT
  Age: 67 Year
  Sex: Female

DRUGS (5)
  1. WARFARIN [Concomitant]
     Active Substance: WARFARIN
  2. SILDENAFIL. [Concomitant]
     Active Substance: SILDENAFIL
  3. MACITENTAN [Suspect]
     Active Substance: MACITENTAN
     Indication: PULMONARY HYPERTENSION
     Dosage: 10 MG, QD
     Route: 048
     Dates: start: 20150812, end: 20150919
  4. MACITENTAN [Suspect]
     Active Substance: MACITENTAN
     Dosage: 10 MG, QD
     Route: 048
     Dates: start: 20150929, end: 20151006
  5. MACITENTAN [Suspect]
     Active Substance: MACITENTAN
     Dosage: UNK
     Route: 048
     Dates: end: 20151105

REACTIONS (14)
  - Haemoglobin decreased [Recovered/Resolved with Sequelae]
  - Transfusion [Unknown]
  - Headache [Recovered/Resolved]
  - Dyspnoea [Recovering/Resolving]
  - Condition aggravated [Recovering/Resolving]
  - Gastrointestinal haemorrhage [Recovered/Resolved with Sequelae]
  - Pain [Recovered/Resolved]
  - Duodenal ulcer [Unknown]
  - Fluid retention [Recovering/Resolving]
  - Oedema peripheral [Not Recovered/Not Resolved]
  - Nausea [Recovered/Resolved]
  - Helicobacter infection [Recovered/Resolved with Sequelae]
  - Fatigue [Recovering/Resolving]
  - Oedema [Unknown]

NARRATIVE: CASE EVENT DATE: 20150827
